FAERS Safety Report 10462566 (Version 2)
Quarter: 2014Q4

REPORT INFORMATION
  Report Type: Report from Study
  Country: CA (occurrence: CA)
  Receive Date: 20140918
  Receipt Date: 20141022
  Transmission Date: 20150528
  Serious: No
  Sender: FDA-Public Use
  Company Number: CA-SA-2014SA127324

PATIENT
  Age: 51 Year
  Sex: Female

DRUGS (5)
  1. AUBAGIO [Suspect]
     Active Substance: TERIFLUNOMIDE
     Indication: RELAPSING-REMITTING MULTIPLE SCLEROSIS
     Route: 048
     Dates: start: 20140514
  2. ADALAT [Concomitant]
     Active Substance: NIFEDIPINE
     Route: 048
  3. ROCALTROL [Concomitant]
     Active Substance: CALCITRIOL
  4. HORMONES AND RELATED AGENTS [Concomitant]
     Route: 048
  5. MAVIK [Concomitant]
     Active Substance: TRANDOLAPRIL
     Route: 048

REACTIONS (4)
  - Skin reaction [Recovering/Resolving]
  - Pruritus [Recovering/Resolving]
  - Alopecia [Recovering/Resolving]
  - Pain in extremity [Recovering/Resolving]

NARRATIVE: CASE EVENT DATE: 2014
